FAERS Safety Report 8210145-6 (Version None)
Quarter: 2012Q1

REPORT INFORMATION
  Report Type: 
  Country: None (occurrence: None)
  Receive Date: 20120314
  Receipt Date: 20110405
  Transmission Date: 20120608
  Serious: No
  Sender: FDA-Public Use
  Company Number: US-ASTRAZENECA-2011SE19195

PATIENT
  Age: 64 Year
  Sex: Female

DRUGS (2)
  1. DIAVAN [Concomitant]
  2. METOPROLOL SUCCINATE [Suspect]
     Indication: HYPERTENSION
     Dosage: 50 MG, 1 TABLET IN THE MORNING AND 1 TABLET AT NIGHT
     Route: 048

REACTIONS (3)
  - WEIGHT DECREASED [None]
  - ALOPECIA [None]
  - HYPOTENSION [None]
